FAERS Safety Report 18750424 (Version 2)
Quarter: 2021Q1

REPORT INFORMATION
  Report Type: Spontaneous
  Country: US (occurrence: US)
  Receive Date: 20210118
  Receipt Date: 20210208
  Transmission Date: 20210419
  Serious: Yes (Life-Threatening, Hospitalization, Other)
  Sender: FDA-Public Use
  Company Number: US-CIPLA LTD.-2021US00162

PATIENT

DRUGS (4)
  1. BENZTROPINE. [Suspect]
     Active Substance: BENZTROPINE
     Dosage: UNK
     Route: 048
  2. QUETIAPINE. [Suspect]
     Active Substance: QUETIAPINE
     Dosage: UNK
     Route: 048
  3. LAMOTRIGINE. [Suspect]
     Active Substance: LAMOTRIGINE
     Dosage: UNK
     Route: 048
  4. NAPROXEN. [Suspect]
     Active Substance: NAPROXEN
     Dosage: UNK
     Route: 048

REACTIONS (8)
  - Intentional overdose [Recovered/Resolved]
  - Neuromuscular toxicity [Recovered/Resolved]
  - Clonus [Recovered/Resolved]
  - Toxicity to various agents [Recovered/Resolved]
  - Muscle rigidity [Recovered/Resolved]
  - Coma [Recovered/Resolved]
  - Hyperreflexia [Recovered/Resolved]
  - Agitation [Recovered/Resolved]
